FAERS Safety Report 18708289 (Version 1)
Quarter: 2021Q1

REPORT INFORMATION
  Report Type: Spontaneous
  Country: US (occurrence: US)
  Receive Date: 20210106
  Receipt Date: 20210106
  Transmission Date: 20210419
  Serious: No
  Sender: FDA-Public Use
  Company Number: US-ABBVIE-20K-163-3280161-00

PATIENT
  Sex: Female

DRUGS (3)
  1. VENCLEXTA [Suspect]
     Active Substance: VENETOCLAX
     Indication: CHOLANGIOCARCINOMA
  2. VENCLEXTA [Suspect]
     Active Substance: VENETOCLAX
     Indication: BREAST CANCER FEMALE
     Route: 048
  3. VENCLEXTA [Suspect]
     Active Substance: VENETOCLAX
     Indication: METASTASES TO LIVER

REACTIONS (5)
  - Off label use [Unknown]
  - Intentional product use issue [Unknown]
  - General physical health deterioration [Unknown]
  - Speech disorder [Unknown]
  - Dyspnoea [Unknown]
